FAERS Safety Report 7833672-X (Version None)
Quarter: 2011Q4

REPORT INFORMATION
  Report Type: 
  Country: None (occurrence: None)
  Receive Date: 20111024
  Receipt Date: 20111012
  Transmission Date: 20120403
  Serious: Yes (Other)
  Sender: FDA-Public Use
  Company Number: US-CUBIST-2011S1000675

PATIENT
  Age: 38 Year
  Sex: Male

DRUGS (11)
  1. RIFAMPIN [Concomitant]
     Route: 065
  2. CUBICIN [Suspect]
  3. VANCOMYCIN HCL [Concomitant]
     Indication: PRODUCT USED FOR UNKNOWN INDICATION
     Route: 065
  4. CUBICIN [Suspect]
     Indication: PYREXIA
     Route: 042
  5. CUBICIN [Suspect]
     Indication: CELLULITIS
     Route: 042
  6. INFLIXIMAB [Concomitant]
     Indication: PRODUCT USED FOR UNKNOWN INDICATION
     Route: 065
  7. CUBICIN [Suspect]
     Route: 042
  8. CUBICIN [Suspect]
  9. CUBICIN [Suspect]
     Route: 042
  10. CUBICIN [Suspect]
  11. CUBICIN [Suspect]

REACTIONS (3)
  - PRODUCTIVE COUGH [None]
  - LUNG INFILTRATION [None]
  - MOTOR DYSFUNCTION [None]
